FAERS Safety Report 8849114 (Version 1)
Quarter: 2012Q4

REPORT INFORMATION
  Report Type: Spontaneous
  Country: US (occurrence: None)
  Receive Date: 20121017
  Receipt Date: 20121017
  Transmission Date: 20130627
  Serious: Yes (Disabling)
  Sender: FDA-Public Use
  Company Number: None

PATIENT
  Sex: Female
  Weight: 65.77 kg

DRUGS (1)
  1. NATURE RELIEF INSTANT WART AND MOLE REMOVER [Suspect]
     Indication: MOLE OF SKIN
     Dates: start: 20110511, end: 20110511

REACTIONS (2)
  - Application site ulcer [None]
  - Application site scar [None]
